FAERS Safety Report 6854835-6 (Version None)
Quarter: 2010Q3

REPORT INFORMATION
  Report Type: 
  Country: None (occurrence: None)
  Receive Date: 20100717
  Receipt Date: 20080207
  Transmission Date: 20110219
  Serious: Yes (Other)
  Sender: FDA-Public Use
  Company Number: US-PFIZER INC-2008004654

PATIENT
  Sex: Female
  Weight: 106.1 kg

DRUGS (3)
  1. CHANTIX [Suspect]
     Indication: EX-TOBACCO USER
     Dates: start: 20070905, end: 20071201
  2. LISINOPRIL [Concomitant]
  3. MULTIVITAMINS AND IRON [Concomitant]

REACTIONS (6)
  - DECREASED APPETITE [None]
  - DEPRESSION [None]
  - MALAISE [None]
  - NAUSEA [None]
  - NERVOUSNESS [None]
  - SUICIDAL IDEATION [None]
